FAERS Safety Report 21577795 (Version 1)
Quarter: 2022Q4

REPORT INFORMATION
  Report Type: Report from Study
  Country: JP (occurrence: JP)
  Receive Date: 20221110
  Receipt Date: 20221110
  Transmission Date: 20230112
  Serious: Yes (Other)
  Sender: FDA-Public Use
  Company Number: JP-UCBSA-2022063627

PATIENT

DRUGS (1)
  1. LACOSAMIDE [Suspect]
     Active Substance: LACOSAMIDE
     Indication: Epilepsy
     Dosage: MEAN MAXIMUM DOSE OF LCM WAS 5.6 ? 1.9 MG/KG/DAY

REACTIONS (2)
  - Neutrophil count decreased [Unknown]
  - Blood immunoglobulin A increased [Unknown]
